FAERS Safety Report 13925900 (Version 3)
Quarter: 2018Q1

REPORT INFORMATION
  Report Type: Spontaneous
  Country: US (occurrence: US)
  Receive Date: 20170831
  Receipt Date: 20180123
  Transmission Date: 20180508
  Serious: Yes (Other)
  Sender: FDA-Public Use
  Company Number: US-BAYER-2017-165601

PATIENT
  Age: 21 Year
  Sex: Female
  Weight: 92.97 kg

DRUGS (1)
  1. KYLEENA [Suspect]
     Active Substance: LEVONORGESTREL
     Indication: CONTRACEPTION
     Dosage: 17.5 MCG/24HR, CONT
     Route: 015
     Dates: start: 20161202, end: 20170912

REACTIONS (6)
  - Drug ineffective [None]
  - Device expulsion [None]
  - Abdominal pain [None]
  - Pregnancy with contraceptive device [None]
  - Genital haemorrhage [None]
  - Premature delivery [None]

NARRATIVE: CASE EVENT DATE: 20170104
